FAERS Safety Report 9274904 (Version 2)
Quarter: 2013Q3

REPORT INFORMATION
  Report Type: Spontaneous
  Country: US (occurrence: US)
  Receive Date: 20130507
  Receipt Date: 20130701
  Transmission Date: 20140515
  Serious: Yes (Hospitalization)
  Sender: FDA-Public Use
  Company Number: US-JNJFOC-20130500826

PATIENT
  Age: 89 Year
  Sex: Male
  Weight: 83 kg

DRUGS (25)
  1. XARELTO [Suspect]
     Indication: CEREBROVASCULAR ACCIDENT PROPHYLAXIS
     Route: 048
     Dates: start: 20130221
  2. XARELTO [Suspect]
     Indication: CEREBROVASCULAR ACCIDENT PROPHYLAXIS
     Route: 048
     Dates: start: 20130118, end: 20130202
  3. XARELTO [Suspect]
     Indication: ATRIAL FIBRILLATION
     Route: 048
     Dates: start: 20130221
  4. XARELTO [Suspect]
     Indication: ATRIAL FIBRILLATION
     Route: 048
     Dates: start: 20130118, end: 20130202
  5. ASPIRIN [Suspect]
     Indication: PRODUCT USED FOR UNKNOWN INDICATION
     Route: 065
     Dates: end: 20130201
  6. RYTHMOL [Concomitant]
     Route: 048
  7. PROTONIX [Concomitant]
     Route: 048
  8. VITAMIN C [Concomitant]
     Route: 065
  9. VITAMIN D3 [Concomitant]
     Dosage: 1000 UNITS
     Route: 065
  10. VITAMIN B12 [Concomitant]
     Route: 048
  11. EVENING PRIMROSE OIL [Concomitant]
     Route: 065
  12. FERROUS SULFATE [Concomitant]
     Route: 048
  13. FINASTERIDE [Concomitant]
     Route: 048
  14. FLAXSEED OIL [Concomitant]
     Route: 048
  15. PREVACID [Concomitant]
     Route: 048
  16. SYNTHROID [Concomitant]
     Route: 048
  17. LOSARTAN [Concomitant]
     Route: 048
  18. MAG-OX [Concomitant]
     Route: 048
  19. NIACIN [Concomitant]
     Route: 048
  20. OMEGA-3 [Concomitant]
     Route: 048
  21. PROPAFENONE [Concomitant]
     Route: 048
  22. SIMVASTATIN [Concomitant]
     Route: 048
  23. FLOMAX [Concomitant]
     Route: 048
  24. VITAMINE E [Concomitant]
     Dosage: 400 UNITS
     Route: 048
  25. UBIDECARENONE [Concomitant]
     Route: 048

REACTIONS (5)
  - Gastritis erosive [Recovered/Resolved]
  - Dyspnoea exertional [Unknown]
  - Haemoglobin decreased [Not Recovered/Not Resolved]
  - Upper gastrointestinal haemorrhage [Recovered/Resolved]
  - Dizziness [Unknown]
